FAERS Safety Report 6890588-3 (Version None)
Quarter: 2010Q3

REPORT INFORMATION
  Report Type: 
  Country: None (occurrence: None)
  Receive Date: 20100731
  Receipt Date: 20081217
  Transmission Date: 20110219
  Serious: No
  Sender: FDA-Public Use
  Company Number: US-PFIZER INC-2008157167

PATIENT
  Sex: Female
  Weight: 65.77 kg

DRUGS (3)
  1. LIPITOR [Suspect]
     Route: 048
     Dates: start: 20081123, end: 20081212
  2. FLONASE [Concomitant]
  3. VERAMYST [Concomitant]

REACTIONS (11)
  - AGEUSIA [None]
  - BODY HEIGHT DECREASED [None]
  - COUGH [None]
  - DECREASED APPETITE [None]
  - DYSPHAGIA [None]
  - HYPOAESTHESIA [None]
  - ODYNOPHAGIA [None]
  - ORAL PAIN [None]
  - PARAESTHESIA [None]
  - STOMATITIS [None]
  - WHEEZING [None]
